FAERS Safety Report 10176808 (Version 1)
Quarter: 2014Q2

REPORT INFORMATION
  Report Type: Spontaneous
  Country: US (occurrence: None)
  Receive Date: 20140515
  Receipt Date: 20140515
  Transmission Date: 20141212
  Serious: Yes (Life-Threatening, Hospitalization, Disabling)
  Sender: FDA-Public Use
  Company Number: None

PATIENT
  Age: 54 Year
  Sex: Female
  Weight: 84.7 kg

DRUGS (2)
  1. DABIGATRAN [Suspect]
     Indication: ATRIAL FIBRILLATION
     Dosage: 1 CAPSULE BID ORAL
  2. CARVEDILOL [Concomitant]

REACTIONS (4)
  - Hemiparesis [None]
  - Lethargy [None]
  - Brain stem haemorrhage [None]
  - Intraventricular haemorrhage [None]
